FAERS Safety Report 10953649 (Version 6)
Quarter: 2016Q2

REPORT INFORMATION
  Report Type: Report from Study
  Country: PR (occurrence: PR)
  Receive Date: 20150325
  Receipt Date: 20160505
  Transmission Date: 20160815
  Serious: Yes (Hospitalization, Other)
  Sender: FDA-Public Use
  Company Number: PR-ABBVIE-15K-131-1359338-00

PATIENT
  Sex: Male
  Weight: 86.26 kg

DRUGS (14)
  1. HUMIRA [Suspect]
     Active Substance: ADALIMUMAB
     Route: 058
     Dates: start: 2015, end: 20150813
  2. GLIPIZIDE. [Concomitant]
     Active Substance: GLIPIZIDE
     Indication: DIABETES MELLITUS
     Route: 048
     Dates: start: 2003
  3. INSULIN [Concomitant]
     Active Substance: INSULIN NOS
     Dosage: P.M.
     Route: 050
  4. PROTONIX [Concomitant]
     Active Substance: PANTOPRAZOLE SODIUM
     Indication: PRODUCT USED FOR UNKNOWN INDICATION
  5. INSULIN [Concomitant]
     Active Substance: INSULIN NOS
     Indication: DIABETES MELLITUS
     Dosage: A.M.
     Route: 050
     Dates: start: 201505
  6. PEPCID [Concomitant]
     Active Substance: FAMOTIDINE
     Indication: PRODUCT USED FOR UNKNOWN INDICATION
  7. METHOTREXATE [Concomitant]
     Active Substance: METHOTREXATE
     Indication: ANKYLOSING SPONDYLITIS
     Dosage: 7.5
     Route: 048
     Dates: start: 20151008
  8. GLUCOTROL [Concomitant]
     Active Substance: GLIPIZIDE
     Indication: PRODUCT USED FOR UNKNOWN INDICATION
  9. LEVAQUIN [Concomitant]
     Active Substance: LEVOFLOXACIN
     Indication: PRODUCT USED FOR UNKNOWN INDICATION
     Route: 048
  10. HUMIRA [Suspect]
     Active Substance: ADALIMUMAB
     Indication: ANKYLOSING SPONDYLITIS
     Route: 058
     Dates: start: 201501, end: 20150302
  11. RELAFEN [Concomitant]
     Active Substance: NABUMETONE
     Indication: BACK PAIN
     Dosage: 750
     Route: 048
     Dates: start: 20151008
  12. NEURONTIN [Concomitant]
     Active Substance: GABAPENTIN
     Indication: PAIN
     Dates: start: 2011, end: 20150204
  13. GLUCOPHAGE [Concomitant]
     Active Substance: METFORMIN HYDROCHLORIDE
     Indication: DIABETES MELLITUS
     Route: 048
     Dates: start: 2003
  14. ULTRACET [Concomitant]
     Active Substance: ACETAMINOPHEN\TRAMADOL HYDROCHLORIDE
     Indication: BACK PAIN
     Dosage: 37.5/325MG
     Route: 048
     Dates: start: 20151008

REACTIONS (13)
  - Pancreatitis [Recovered/Resolved]
  - Gallbladder non-functioning [Recovering/Resolving]
  - Mobility decreased [Not Recovered/Not Resolved]
  - Diabetes mellitus inadequate control [Not Recovered/Not Resolved]
  - Cholecystitis infective [Recovered/Resolved]
  - Dyspnoea [Recovering/Resolving]
  - Chest pain [Recovering/Resolving]
  - Abscess [Recovered/Resolved]
  - Ankylosing spondylitis [Not Recovered/Not Resolved]
  - Arthralgia [Not Recovered/Not Resolved]
  - Pancreatitis [Recovered/Resolved]
  - Nephrolithiasis [Recovering/Resolving]
  - Cholelithiasis [Recovered/Resolved]

NARRATIVE: CASE EVENT DATE: 2015
